FAERS Safety Report 17241032 (Version 1)
Quarter: 2020Q1

REPORT INFORMATION
  Report Type: Spontaneous
  Country: US (occurrence: US)
  Receive Date: 20200107
  Receipt Date: 20200107
  Transmission Date: 20200409
  Serious: Yes (Life-Threatening, Hospitalization)
  Sender: FDA-Public Use
  Company Number: US-TEVA-2020-US-1163120

PATIENT
  Age: 19 Year
  Sex: Male

DRUGS (21)
  1. MIDAZOLAM HYDROCHLORIDE. [Suspect]
     Active Substance: MIDAZOLAM HYDROCHLORIDE
     Indication: ANAESTHESIA
     Dosage: INITIAL DOSE NOT STATED
     Route: 041
  2. MIDAZOLAM HYDROCHLORIDE. [Suspect]
     Active Substance: MIDAZOLAM HYDROCHLORIDE
     Indication: STATUS EPILEPTICUS
     Route: 041
  3. PENTOBARBITAL. [Suspect]
     Active Substance: PENTOBARBITAL
     Indication: STATUS EPILEPTICUS
  4. PROPOFOL. [Suspect]
     Active Substance: PROPOFOL
     Indication: STATUS EPILEPTICUS
  5. TOPIRAMATE. [Concomitant]
     Active Substance: TOPIRAMATE
     Indication: STATUS EPILEPTICUS
     Dosage: MAXIMUM DOSE: 1000 MG/DAY
     Route: 065
  6. VANCOMYCIN [Concomitant]
     Active Substance: VANCOMYCIN
     Indication: MENINGITIS BACTERIAL
     Route: 065
  7. CLOBAZAM. [Concomitant]
     Active Substance: CLOBAZAM
     Indication: STATUS EPILEPTICUS
     Dosage: MAXIMUM DOSE: 120 MG/DAY
     Route: 065
  8. IVIG [Concomitant]
     Active Substance: HUMAN IMMUNOGLOBULIN G
     Indication: STATUS EPILEPTICUS
  9. PENTOBARBITAL. [Suspect]
     Active Substance: PENTOBARBITAL
     Indication: ANAESTHESIA
     Dosage: MAXIMUM DOSE: 5 MICROG/KG/HOUR
     Route: 042
  10. VALPROIC ACID. [Concomitant]
     Active Substance: VALPROIC ACID
     Indication: GENERALISED TONIC-CLONIC SEIZURE
     Dosage: MAXIMUM DOSE: 2000 MG/DAY
     Route: 065
  11. OXCARBAZEPINE. [Concomitant]
     Active Substance: OXCARBAZEPINE
     Indication: STATUS EPILEPTICUS
     Dosage: MAXIMUM DOSE: 1800 MG/DAY
     Route: 065
  12. PHENOBARBITAL. [Concomitant]
     Active Substance: PHENOBARBITAL
     Indication: STATUS EPILEPTICUS
     Dosage: INITIAL BLOOD LEVELS:-AROUND 60 MICROG/ML
     Route: 065
  13. PHENOBARBITAL. [Concomitant]
     Active Substance: PHENOBARBITAL
     Indication: STATUS EPILEPTICUS
     Dosage: HIGHEST BLOOD LEVELS:-AROUND 100.4 MICROG/ML
     Route: 065
  14. IVIG [Concomitant]
     Active Substance: HUMAN IMMUNOGLOBULIN G
     Indication: STATUS EPILEPTICUS
     Dosage: 0.4 G/KG/DAY FOR FIVE DAYS
     Route: 042
  15. RITUXIMAB. [Concomitant]
     Active Substance: RITUXIMAB
     Indication: STATUS EPILEPTICUS
  16. PROPOFOL. [Suspect]
     Active Substance: PROPOFOL
     Indication: ANAESTHESIA
     Dosage: MAXIMUM DOSE: 50 MICROG/KG/HOUR
     Route: 042
  17. ACICLOVIR [Concomitant]
     Active Substance: ACYCLOVIR
     Indication: MENINGOENCEPHALITIS VIRAL
     Route: 065
  18. LACOSAMIDE. [Concomitant]
     Active Substance: LACOSAMIDE
     Indication: STATUS EPILEPTICUS
     Dosage: MAXIMUM DOSE: 400 MG/DAY
     Route: 065
  19. CEFTRIAXONE. [Concomitant]
     Active Substance: CEFTRIAXONE
     Indication: MENINGITIS BACTERIAL
     Route: 065
  20. LEVETIRACETAM. [Concomitant]
     Active Substance: LEVETIRACETAM
     Indication: GENERALISED TONIC-CLONIC SEIZURE
     Dosage: MAXIMUM DOSE: 4000 MG/DAY
     Route: 065
  21. RITUXIMAB. [Concomitant]
     Active Substance: RITUXIMAB
     Indication: STATUS EPILEPTICUS
     Route: 065

REACTIONS (2)
  - Therapy non-responder [Unknown]
  - Drug withdrawal convulsions [Recovered/Resolved]
